FAERS Safety Report 8713081 (Version 2)
Quarter: 2012Q4

REPORT INFORMATION
  Report Type: 
  Country: BR (occurrence: BR)
  Receive Date: 20120808
  Receipt Date: 20121016
  Transmission Date: 20130627
  Serious: Yes (Other)
  Sender: FDA-Public Use
  Company Number: BR-PFIZER INC-2012190357

PATIENT
  Sex: Male
  Weight: 81 kg

DRUGS (2)
  1. SUTENT [Suspect]
     Indication: RENAL CELL CARCINOMA
     Dosage: 50 mg, continuous use
     Route: 048
     Dates: start: 20120511, end: 20120811
  2. INSULIN [Concomitant]
     Dosage: UNK

REACTIONS (5)
  - Pulmonary oedema [Unknown]
  - Cardiac disorder [Unknown]
  - Dyspnoea [Unknown]
  - Swelling [Unknown]
  - Yellow skin [Unknown]
